FAERS Safety Report 5190669-9 (Version None)
Quarter: 2006Q4

REPORT INFORMATION
  Report Type: 
  Country: None (occurrence: None)
  Receive Date: 20061222
  Receipt Date: 20061113
  Transmission Date: 20070319
  Serious: No
  Sender: FDA-Public Use
  Company Number: US-BRISTOL-MYERS SQUIBB COMPANY-13576657

PATIENT

DRUGS (1)
  1. ORENCIA [Suspect]

REACTIONS (1)
  - SERUM SICKNESS [None]
